FAERS Safety Report 9344060 (Version 1)
Quarter: 2013Q2

REPORT INFORMATION
  Report Type: Spontaneous
  Country: AU (occurrence: None)
  Receive Date: 20130610
  Receipt Date: 20130610
  Transmission Date: 20140414
  Serious: Yes (Death, Hospitalization)
  Sender: FDA-Public Use
  Company Number: 2013AP005617

PATIENT
  Age: 82 Year
  Sex: Female

DRUGS (14)
  1. SERTRALINE HYDROCHLORIDE (SERTRALINE HYDROCHLORIDE) [Suspect]
     Route: 048
     Dates: end: 20130224
  2. MAXOLON [Suspect]
  3. ONDANSETRON HYDROCHLORIDE [Suspect]
  4. PROMETHAZINE HYDROCHLORIDE [Suspect]
  5. ASPIRIN (ACETYLSALICYLIC ACID) [Concomitant]
  6. CODEINE (CODEINE) [Concomitant]
  7. DOMPERIDONE (DOMPERIDONE) [Concomitant]
  8. FENTANYL (FENTANYL) [Concomitant]
  9. METOPROLOL (METOPROLOL) [Concomitant]
  10. OXYCODONE (OXYCODONE) [Concomitant]
  11. PANADOL/00020001/(PARACETAMOL) [Concomitant]
  12. THYROXINE SODIUM (LEVOTHYROXINE SODIUM) [Concomitant]
  13. URSODEOXYCHOLIC ACID (URSODEOXYCHOLIC ACID)/00107901/(ERGOCALCIFEROL) [Concomitant]
  14. VITAMIN D /00107901/ (ERGOCALCIFEROL) [Concomitant]

REACTIONS (4)
  - Pneumonia aspiration [None]
  - Serotonin syndrome [None]
  - Dehydration [None]
  - Procedural nausea [None]
